FAERS Safety Report 8484283-7 (Version None)
Quarter: 2012Q3

REPORT INFORMATION
  Report Type: 
  Country: None (occurrence: None)
  Receive Date: 20120703
  Receipt Date: 20120625
  Transmission Date: 20120928
  Serious: Yes (Hospitalization)
  Sender: FDA-Public Use
  Company Number: US-BAYER-2012-060764

PATIENT
  Age: 21 Year
  Sex: Female
  Weight: 70.295 kg

DRUGS (9)
  1. YAZ [Suspect]
     Indication: CONTRACEPTION
     Dosage: UNK
     Dates: start: 20101001, end: 20101201
  2. HYDROCODONE BITARTRATE AND ACETAMINOPHEN [Concomitant]
     Dosage: 7.5/325 MG TABLETS
     Dates: start: 20100807, end: 20111229
  3. DROSPIRENONE AND ETHINYL ESTRADIOL [Suspect]
     Indication: CONTRACEPTION
     Dosage: UNK
     Dates: start: 20110107, end: 20110316
  4. NSAID'S [Concomitant]
  5. AMPHETAMINE AND DEXTROAMPHETAMINE SALTS [Concomitant]
     Indication: ATTENTION DEFICIT/HYPERACTIVITY DISORDER
     Dosage: 20 MG, UNK
     Dates: start: 20100816
  6. ADDERALL 5 [Concomitant]
  7. NAPROXEN [Concomitant]
     Dosage: 50 MG, UNK
     Dates: start: 20110312
  8. METHOCARBAMOL [Concomitant]
     Dosage: 750 MG, UNK
     Dates: start: 20110312
  9. HYDROCODONE BITARTRATE AND ACETAMINOPHEN [Concomitant]
     Dosage: 5/500 MG TABLETS
     Dates: start: 20100807, end: 20111229

REACTIONS (3)
  - DEEP VEIN THROMBOSIS [None]
  - PAIN IN EXTREMITY [None]
  - INJURY [None]
